FAERS Safety Report 13484301 (Version 1)
Quarter: 2017Q2

REPORT INFORMATION
  Report Type: Spontaneous
  Country: SE (occurrence: SE)
  Receive Date: 20170425
  Receipt Date: 20170425
  Transmission Date: 20170830
  Serious: Yes (Hospitalization)
  Sender: FDA-Public Use
  Company Number: SE-ROCHE-1923659

PATIENT
  Age: 34 Year
  Sex: Male

DRUGS (6)
  1. IKTORIVIL [Suspect]
     Active Substance: CLONAZEPAM
     Indication: PAIN
     Route: 048
     Dates: start: 20150216, end: 20150216
  2. XANOR [Suspect]
     Active Substance: ALPRAZOLAM
     Indication: PAIN
     Route: 048
     Dates: start: 20150216, end: 20150216
  3. THERALEN [Concomitant]
     Active Substance: TRIMEPRAZINE
     Route: 065
  4. LANEXAT [Concomitant]
     Route: 065
  5. OXYCONTIN [Suspect]
     Active Substance: OXYCODONE HYDROCHLORIDE
     Indication: PAIN
     Route: 048
     Dates: start: 20150216, end: 20150216
  6. LYRICA [Concomitant]
     Active Substance: PREGABALIN
     Route: 065

REACTIONS (2)
  - Dyspnoea [Recovered/Resolved]
  - Depressed level of consciousness [Recovered/Resolved]

NARRATIVE: CASE EVENT DATE: 20150216
